FAERS Safety Report 19894146 (Version 1)
Quarter: 2021Q3

REPORT INFORMATION
  Report Type: Spontaneous
  Country: US (occurrence: US)
  Receive Date: 20210928
  Receipt Date: 20210928
  Transmission Date: 20211014
  Serious: No
  Sender: FDA-Public Use
  Company Number: None

PATIENT
  Age: 59 Year
  Sex: Male
  Weight: 68.9 kg

DRUGS (3)
  1. LEUCOVORIN. [Concomitant]
     Active Substance: LEUCOVORIN
     Dates: start: 20210823
  2. IRINOTECAN [Concomitant]
     Active Substance: IRINOTECAN
     Dates: start: 20210823
  3. OXALIPLATIN. [Suspect]
     Active Substance: OXALIPLATIN
     Indication: PANCREATIC CARCINOMA
     Dosage: OTHER FREQUENCY:EVERY 14 DAYS;?
     Route: 041
     Dates: start: 20210823

REACTIONS (5)
  - Dizziness [None]
  - Tongue pruritus [None]
  - Tongue paralysis [None]
  - Infusion related reaction [None]
  - Paraesthesia [None]

NARRATIVE: CASE EVENT DATE: 20210922
